FAERS Safety Report 4441609-9 (Version None)
Quarter: 2004Q3

REPORT INFORMATION
  Report Type: 
  Country: None (occurrence: None)
  Receive Date: 20040907
  Receipt Date: 20040826
  Transmission Date: 20050211
  Serious: Yes (Other)
  Sender: FDA-Public Use
  Company Number: FR-JNJFOC-20040606372

PATIENT
  Sex: Female
  Weight: 99 kg

DRUGS (2)
  1. EPITOMAX [Suspect]
     Route: 049
  2. EPITOMAX [Suspect]
     Indication: MYOCLONIC EPILEPSY
     Route: 049

REACTIONS (9)
  - AMNIOCENTESIS ABNORMAL [None]
  - DRUG EXPOSURE DURING PREGNANCY [None]
  - ESCHERICHIA INFECTION [None]
  - HAEMORRHAGE [None]
  - PLACENTAL DISORDER [None]
  - PREMATURE BABY [None]
  - PREMATURE RUPTURE OF MEMBRANES [None]
  - UMBILICAL CORD PROLAPSE [None]
  - WEIGHT ABOVE NORMAL [None]
